FAERS Safety Report 10241632 (Version 1)
Quarter: 2014Q2

REPORT INFORMATION
  Report Type: Spontaneous
  Country: US (occurrence: US)
  Receive Date: 20140617
  Receipt Date: 20140617
  Transmission Date: 20141212
  Serious: Yes (Other)
  Sender: FDA-Public Use
  Company Number: US-ACTAVIS-2014-13551

PATIENT
  Age: 37 Year
  Sex: Male

DRUGS (2)
  1. ZOLPIDEM TARTRATE (WATSON LABORATORIES) [Suspect]
     Indication: INSOMNIA
     Dosage: 10 MG, QHS
     Route: 065
  2. ZOLPIDEM TARTRATE (WATSON LABORATORIES) [Interacting]
     Dosage: 5 MG, UNK
     Route: 065

REACTIONS (7)
  - Suicidal behaviour [Recovered/Resolved]
  - Amnestic disorder [Recovered/Resolved]
  - Incoherent [Recovered/Resolved]
  - Disorientation [Recovered/Resolved]
  - Alcohol interaction [Recovered/Resolved]
  - Intentional overdose [Recovered/Resolved]
  - Intentional product misuse [Recovered/Resolved]
